FAERS Safety Report 12157968 (Version 1)
Quarter: 2016Q1

REPORT INFORMATION
  Report Type: Spontaneous
  Country: US (occurrence: None)
  Receive Date: 20160307
  Receipt Date: 20160307
  Transmission Date: 20160526
  Serious: No
  Sender: FDA-Public Use
  Company Number: None

PATIENT
  Age: 0 Day
  Sex: Female
  Weight: 78.02 kg

DRUGS (13)
  1. TRUBIOTIC [Concomitant]
  2. NATPARA (PARATHYROID HORMONE) [Concomitant]
     Active Substance: PARATHYROID HORMONE
  3. VITAMIN D [Concomitant]
     Active Substance: CHOLECALCIFEROL
  4. CALCITRIOL. [Concomitant]
     Active Substance: CALCITRIOL
  5. NATURE-THROID [Concomitant]
     Active Substance: THYROID, PORCINE
  6. CALCIUM CARBONATE. [Concomitant]
     Active Substance: CALCIUM CARBONATE
  7. CLARITIN [Concomitant]
     Active Substance: LORATADINE
  8. VITRON-C [Concomitant]
  9. TYLENOL [Concomitant]
     Active Substance: ACETAMINOPHEN
  10. LANTUS [Concomitant]
     Active Substance: INSULIN GLARGINE
  11. NATPARA (PARATHYROID HORMONE) [Suspect]
     Active Substance: PARATHYROID HORMONE
     Indication: HYPOPARATHYROIDISM
     Dosage: 75 MCG, ONCE DAILY, APPLIED TO A SURFACE, USUALLY THE SKIN
     Dates: start: 20160301, end: 20160305
  12. PRILOEC [Concomitant]
  13. HUMALOG [Concomitant]
     Active Substance: INSULIN LISPRO

REACTIONS (5)
  - Injection site nodule [None]
  - Injection site pain [None]
  - Injection site warmth [None]
  - Drug ineffective [None]
  - Injection site erythema [None]

NARRATIVE: CASE EVENT DATE: 20160301
